FAERS Safety Report 5537410-5 (Version None)
Quarter: 2007Q4

REPORT INFORMATION
  Report Type: 
  Country: None (occurrence: None)
  Receive Date: 20071207
  Receipt Date: 20071128
  Transmission Date: 20080405
  Serious: Yes (Hospitalization)
  Sender: FDA-Public Use
  Company Number: B0497892A

PATIENT
  Age: 74 Year
  Sex: Male

DRUGS (7)
  1. ARIXTRA [Suspect]
     Indication: PULMONARY EMBOLISM
     Route: 058
     Dates: start: 20071030, end: 20071109
  2. ZYLORIC [Concomitant]
     Dosage: 200MG PER DAY
  3. GLUCOPHAGE [Concomitant]
  4. KARDEGIC [Concomitant]
     Dates: end: 20071001
  5. FLECAINIDE ACETATE [Concomitant]
  6. NEBILOX [Concomitant]
  7. LOVENOX [Concomitant]
     Indication: PROPHYLAXIS
     Dates: start: 20071019, end: 20071030

REACTIONS (4)
  - HAEMATOMA [None]
  - HEPATOCELLULAR DAMAGE [None]
  - RENAL FAILURE [None]
  - THROMBOCYTOPENIA [None]
